FAERS Safety Report 9375256 (Version 1)
Quarter: 2013Q2

REPORT INFORMATION
  Report Type: Report from Study
  Country: CA (occurrence: CA)
  Receive Date: 20130628
  Receipt Date: 20130628
  Transmission Date: 20140414
  Serious: Yes (Death, Other)
  Sender: FDA-Public Use
  Company Number: CA-ABBOTT-07P-028-0363058-00

PATIENT
  Age: 57 Year
  Sex: Female

DRUGS (5)
  1. HUMIRA 40 MG/ 0.8 ML PRE-FILLED SYRINGE [Suspect]
     Indication: RHEUMATOID ARTHRITIS
     Route: 058
     Dates: start: 200606, end: 20070305
  2. MTX [Concomitant]
     Indication: RHEUMATOID ARTHRITIS
     Route: 048
     Dates: start: 2002
  3. INH [Concomitant]
     Indication: PROPHYLAXIS
     Route: 048
     Dates: start: 200604
  4. B6 [Concomitant]
     Indication: PROPHYLAXIS
     Route: 048
     Dates: start: 200604
  5. FOLIC ACID [Concomitant]
     Indication: PROPHYLAXIS
     Dosage: 5 MG EVERY DAY 2/7
     Route: 048
     Dates: start: 2002

REACTIONS (2)
  - Pharyngeal cancer [Fatal]
  - Neoplasm malignant [Unknown]
